FAERS Safety Report 5491447-3 (Version None)
Quarter: 2007Q4

REPORT INFORMATION
  Report Type: 
  Country: None (occurrence: None)
  Receive Date: 20071018
  Receipt Date: 20071009
  Transmission Date: 20080405
  Serious: Yes (Other)
  Sender: FDA-Public Use
  Company Number: 2007US002492

PATIENT
  Age: 69 Year
  Sex: Male

DRUGS (1)
  1. MYCAMINE [Suspect]
     Indication: DRUG USE FOR UNKNOWN INDICATION
     Dosage: PARENTERAL
     Route: 051
     Dates: start: 20070925

REACTIONS (1)
  - NEPHROGENIC DIABETES INSIPIDUS [None]
